FAERS Safety Report 14225082 (Version 1)
Quarter: 2017Q4

REPORT INFORMATION
  Report Type: Spontaneous
  Country: FR (occurrence: FR)
  Receive Date: 20171127
  Receipt Date: 20171127
  Transmission Date: 20180321
  Serious: Yes (Other)
  Sender: FDA-Public Use
  Company Number: FR-MERCK KGAA-2036014

PATIENT
  Age: 70 Year
  Sex: Female

DRUGS (2)
  1. NOVOTHYROX [Suspect]
     Active Substance: LEVOTHYROXINE SODIUM
     Indication: THYROID CANCER
     Dates: start: 201704
  2. NOVOTHYROX [Suspect]
     Active Substance: LEVOTHYROXINE SODIUM
     Dates: start: 20171004

REACTIONS (9)
  - Suicidal ideation [None]
  - Hot flush [Recovered/Resolved]
  - Insomnia [None]
  - Alopecia [None]
  - Anxiety [None]
  - Palpitations [Recovering/Resolving]
  - Breast mass [None]
  - Fatigue [None]
  - Blood thyroid stimulating hormone decreased [None]

NARRATIVE: CASE EVENT DATE: 201709
